FAERS Safety Report 10032823 (Version 5)
Quarter: 2014Q2

REPORT INFORMATION
  Report Type: Spontaneous
  Country: JP (occurrence: JP)
  Receive Date: 20140324
  Receipt Date: 20140611
  Transmission Date: 20141212
  Serious: Yes (Other)
  Sender: FDA-Public Use
  Company Number: JP-PFIZER INC-2014079753

PATIENT
  Age: 71 Year
  Sex: Female

DRUGS (3)
  1. CELECOX [Suspect]
     Dosage: 200 MG, DAILY
     Route: 048
     Dates: start: 2010, end: 20140305
  2. OLMETEC [Concomitant]
     Dosage: UNK
  3. LIVALO [Concomitant]
     Dosage: UNK

REACTIONS (3)
  - Cardiovascular disorder [Unknown]
  - Blood pressure increased [Not Recovered/Not Resolved]
  - Nasopharyngitis [Unknown]
